FAERS Safety Report 25832645 (Version 1)
Quarter: 2025Q3

REPORT INFORMATION
  Report Type: Spontaneous
  Country: US (occurrence: US)
  Receive Date: 20250922
  Receipt Date: 20250922
  Transmission Date: 20251021
  Serious: Yes (Other)
  Sender: BIOMARIN
  Company Number: US-BIOMARINAP-US-2025-168778

PATIENT
  Age: 9 Year

DRUGS (1)
  1. BRINEURA [Suspect]
     Active Substance: CERLIPONASE ALFA
     Indication: Product used for unknown indication

REACTIONS (4)
  - Device leakage [Unknown]
  - Catheter site inflammation [Unknown]
  - Underdose [Unknown]
  - Off label use [Unknown]

NARRATIVE: CASE EVENT DATE: 20250819
